FAERS Safety Report 13124914 (Version 2)
Quarter: 2020Q3

REPORT INFORMATION
  Report Type: Report from Study
  Country: UA (occurrence: UA)
  Receive Date: 20170118
  Receipt Date: 20170207
  Transmission Date: 20201105
  Serious: Yes (Death)
  Sender: FDA-Public Use
  Company Number: UA-US WORLDMEDS, LLC-USW201611-000817

PATIENT
  Age: 62 Year
  Sex: Female
  Weight: 49.3 kg

DRUGS (2)
  1. BORIZOL [Concomitant]
     Indication: AMYOTROPHIC LATERAL SCLEROSIS
     Route: 048
     Dates: start: 20151216
  2. MYOBLOC [Suspect]
     Active Substance: RIMABOTULINUMTOXINB
     Indication: SALIVARY HYPERSECRETION
     Dates: start: 20151218, end: 20160927

REACTIONS (3)
  - Amyotrophic lateral sclerosis [Fatal]
  - Disease progression [Fatal]
  - Brain oedema [Fatal]

NARRATIVE: CASE EVENT DATE: 20160406
